FAERS Safety Report 18550092 (Version 1)
Quarter: 2020Q4

REPORT INFORMATION
  Report Type: Spontaneous
  Country: DE (occurrence: DE)
  Receive Date: 20201126
  Receipt Date: 20201126
  Transmission Date: 20210114
  Serious: Yes (Hospitalization, Other)
  Sender: FDA-Public Use
  Company Number: DE-PFIZER INC-2020462876

PATIENT
  Age: 49 Year
  Sex: Male

DRUGS (6)
  1. PEMBROLIZUMAB. [Suspect]
     Active Substance: PEMBROLIZUMAB
     Dosage: 200MG COMBINED WITH PEMETREXED, MAINTENANCE
     Dates: start: 201901, end: 20190213
  2. DENOSUMAB [Suspect]
     Active Substance: DENOSUMAB
     Indication: NON-SMALL CELL LUNG CANCER
     Dosage: FREQ:4 WK;120MG EVERY 4 WEEKS
     Dates: start: 201810, end: 201812
  3. PEMETREXED. [Suspect]
     Active Substance: PEMETREXED
     Dosage: UNK UNK, CYCLIC
     Dates: start: 201810, end: 201812
  4. PEMBROLIZUMAB. [Suspect]
     Active Substance: PEMBROLIZUMAB
     Indication: NON-SMALL CELL LUNG CANCER
     Dosage: UNK UNK, CYCLIC
     Dates: start: 201810, end: 201812
  5. CARBOPLATIN. [Suspect]
     Active Substance: CARBOPLATIN
     Indication: NON-SMALL CELL LUNG CANCER
     Dosage: UNK, CYCLIC
     Dates: start: 201810, end: 201812
  6. PEMETREXED. [Suspect]
     Active Substance: PEMETREXED
     Dosage: 500 MILLIGRAM/SQ. METER (MG/M2) ON DAY 1
     Dates: start: 201901

REACTIONS (3)
  - Tubulointerstitial nephritis [Unknown]
  - Nausea [Unknown]
  - Vomiting [Unknown]

NARRATIVE: CASE EVENT DATE: 2019
